FAERS Safety Report 6541284-3 (Version None)
Quarter: 2010Q1

REPORT INFORMATION
  Report Type: 
  Country: None (occurrence: None)
  Receive Date: 20100118
  Receipt Date: 20100112
  Transmission Date: 20100710
  Serious: Yes (Hospitalization)
  Sender: FDA-Public Use
  Company Number: US-ELI_LILLY_AND_COMPANY-US201001001919

PATIENT
  Sex: Female
  Weight: 108.84 kg

DRUGS (4)
  1. BYETTA [Suspect]
     Indication: TYPE 2 DIABETES MELLITUS
     Dosage: 10 UG, 2/D
     Route: 058
     Dates: start: 20070101
  2. GLIMEPIRIDE [Concomitant]
  3. GLYBURIDE [Concomitant]
  4. DIOVAN HCT [Concomitant]
     Indication: BLOOD PRESSURE
     Dosage: UNK, DAILY (1/D)

REACTIONS (9)
  - ANKLE FRACTURE [None]
  - BACK PAIN [None]
  - BLOOD GLUCOSE INCREASED [None]
  - DYSSTASIA [None]
  - FALL [None]
  - FEELING HOT [None]
  - JOINT SWELLING [None]
  - OEDEMA PERIPHERAL [None]
  - PAIN IN EXTREMITY [None]
